FAERS Safety Report 8168632-5 (Version None)
Quarter: 2012Q1

REPORT INFORMATION
  Report Type: 
  Country: None (occurrence: None)
  Receive Date: 20120227
  Receipt Date: 20120221
  Transmission Date: 20120608
  Serious: Yes (Hospitalization)
  Sender: FDA-Public Use
  Company Number: NL-PFIZER INC-2012014007

PATIENT
  Age: 64 Year
  Sex: Male

DRUGS (8)
  1. SUTENT [Suspect]
     Indication: METASTATIC RENAL CELL CARCINOMA
     Dosage: 50MG, 4/2 SCHEDULE
     Dates: start: 20111214
  2. PRIMPERAN TAB [Concomitant]
     Dosage: 10 MG, 3X/DAY
  3. OMEPRAZOLE [Concomitant]
     Dosage: 20 MG, 1X/DAY
  4. MOVICOLON [Concomitant]
  5. SUTENT [Suspect]
     Dosage: 37.5 MG, 4/2 SCHEDULE
  6. OXYCONTIN [Concomitant]
     Dosage: 10 MG, 3X/DAY
  7. DICLOFENAC [Concomitant]
     Dosage: 50 MG, 3X/DAY
  8. PARACETAMOL [Concomitant]
     Dosage: UNK

REACTIONS (10)
  - THROMBOCYTOPENIA [None]
  - NAUSEA [None]
  - ORAL PAIN [None]
  - VOMITING [None]
  - LEUKOPENIA [None]
  - HEPATIC FUNCTION ABNORMAL [None]
  - EYELID OEDEMA [None]
  - AGEUSIA [None]
  - MALAISE [None]
  - ARTHRALGIA [None]
